FAERS Safety Report 19133899 (Version 2)
Quarter: 2021Q2

REPORT INFORMATION
  Report Type: Spontaneous
  Country: US (occurrence: US)
  Receive Date: 20210414
  Receipt Date: 20210419
  Transmission Date: 20210717
  Serious: Yes (Hospitalization, Other)
  Sender: FDA-Public Use
  Company Number: US-PFIZER INC-2021240964

PATIENT
  Age: 58 Year
  Sex: Female

DRUGS (3)
  1. XELJANZ XR [Suspect]
     Active Substance: TOFACITINIB CITRATE
     Dosage: 11 MG
     Dates: start: 20210104
  2. XELJANZ XR [Suspect]
     Active Substance: TOFACITINIB CITRATE
     Dosage: 11 MG
     Dates: start: 20210101, end: 20210331
  3. XELJANZ XR [Suspect]
     Active Substance: TOFACITINIB CITRATE
     Dosage: 11 MG
     Dates: start: 20210226

REACTIONS (11)
  - Oral herpes [Unknown]
  - Somnolence [Unknown]
  - Nasopharyngitis [Unknown]
  - Poor quality sleep [Unknown]
  - Fatigue [Unknown]
  - Lymphoma [Unknown]
  - Constipation [Unknown]
  - Eating disorder [Unknown]
  - Feeling cold [Unknown]
  - Abdominal pain [Unknown]
  - Abdominal pain upper [Unknown]
